FAERS Safety Report 13020376 (Version 2)
Quarter: 2017Q1

REPORT INFORMATION
  Report Type: Spontaneous
  Country: FR (occurrence: FR)
  Receive Date: 20161212
  Receipt Date: 20170315
  Transmission Date: 20170428
  Serious: Yes (Other)
  Sender: FDA-Public Use
  Company Number: FR-EISAI MEDICAL RESEARCH-EC-2016-023171

PATIENT
  Sex: Male

DRUGS (7)
  1. SEROPLEX [Suspect]
     Active Substance: ESCITALOPRAM OXALATE
     Indication: PRODUCT USED FOR UNKNOWN INDICATION
     Route: 048
  2. ARICEPT [Suspect]
     Active Substance: DONEPEZIL HYDROCHLORIDE
     Indication: DEMENTIA
     Route: 048
     Dates: start: 2014, end: 20161109
  3. NEURONTIN [Suspect]
     Active Substance: GABAPENTIN
     Indication: CAUDA EQUINA SYNDROME
     Dosage: 1800 MG
     Route: 048
  4. NEURONTIN [Suspect]
     Active Substance: GABAPENTIN
     Dosage: DOSE REDUCED (UNSPECIFIED)
     Route: 048
  5. SEROPLEX [Suspect]
     Active Substance: ESCITALOPRAM OXALATE
     Dosage: DOSE REDUCED (UNSPECIFIED)
     Route: 048
  6. BISOPROLOL [Concomitant]
     Active Substance: BISOPROLOL
     Indication: PRODUCT USED FOR UNKNOWN INDICATION
     Dosage: UNKNOWN
  7. INEGY [Concomitant]
     Active Substance: EZETIMIBE\SIMVASTATIN
     Indication: PRODUCT USED FOR UNKNOWN INDICATION
     Dosage: UNKNOWN

REACTIONS (1)
  - Malaise [Recovered/Resolved]

NARRATIVE: CASE EVENT DATE: 2014
